FAERS Safety Report 4741563-6 (Version None)
Quarter: 2005Q3

REPORT INFORMATION
  Report Type: 
  Country: None (occurrence: None)
  Receive Date: 20050808
  Receipt Date: 20050725
  Transmission Date: 20060218
  Serious: Yes (Death)
  Sender: FDA-Public Use
  Company Number: GB-2005-014720

PATIENT
  Age: 1 Year
  Sex: Female
  Weight: 1.2 kg

DRUGS (8)
  1. FLUDARABINE PHOSPHATE [Suspect]
     Indication: ACUTE MYELOID LEUKAEMIA
     Dosage: 17 MG, CYCLE X 5D, INTRAVENOUS
     Route: 042
     Dates: start: 20041221, end: 20041225
  2. ACETYLSALICYLIC ACID (ACETYLSALICYLIC ACID) TABLET [Suspect]
     Dosage: 120 MG, 2X/DAY, ORAL
     Route: 048
     Dates: start: 20041221, end: 20041229
  3. CYTARABINE [Suspect]
     Indication: ACUTE MYELOID LEUKAEMIA
     Dosage: 1100 MG, CYCLE X 5D, INTRAVENOUS
     Route: 042
     Dates: start: 20041221, end: 20041225
  4. FLUCLOXACILLIN (FLUCLOXACILLIN) [Concomitant]
  5. GENTAMICIN [Concomitant]
  6. CODEINE SUL TAB [Concomitant]
  7. ALLOPURINOL [Concomitant]
  8. CEFTRIAXONE [Concomitant]

REACTIONS (2)
  - NASOPHARYNGITIS [None]
  - TOXIC EPIDERMAL NECROLYSIS [None]
